FAERS Safety Report 16925638 (Version 1)
Quarter: 2019Q4

REPORT INFORMATION
  Report Type: Spontaneous
  Country: US (occurrence: US)
  Receive Date: 20190823
  Receipt Date: 20190823
  Transmission Date: 20200122
  Serious: No
  Sender: FDA-Public Use
  Company Number: None

PATIENT
  Age: 59 Year
  Sex: Female

DRUGS (1)
  1. MAVYRET [Suspect]
     Active Substance: GLECAPREVIR\PIBRENTASVIR
     Dosage: ?          OTHER DOSE:100/40 MG;?
     Route: 048
     Dates: start: 201906

REACTIONS (5)
  - Scratch [None]
  - Skin haemorrhage [None]
  - Pruritus [None]
  - Dry skin [None]
  - Therapy non-responder [None]

NARRATIVE: CASE EVENT DATE: 20190809
